FAERS Safety Report 22006806 (Version 1)
Quarter: 2023Q1

REPORT INFORMATION
  Report Type: Spontaneous
  Country: US (occurrence: US)
  Receive Date: 20230217
  Receipt Date: 20230217
  Transmission Date: 20230417
  Serious: No
  Sender: FDA-Public Use
  Company Number: US-BAYER-2023A014031

PATIENT
  Age: 89 Year
  Sex: Female

DRUGS (3)
  1. CLARITIN [Suspect]
     Active Substance: LORATADINE
     Indication: Pruritus
     Dosage: UNK
     Route: 048
     Dates: start: 20230202
  2. CLARITIN [Suspect]
     Active Substance: LORATADINE
     Indication: Hypersensitivity
     Dosage: 2 DF, ONCE
     Route: 048
     Dates: start: 20230203, end: 20230203
  3. CLARITIN [Suspect]
     Active Substance: LORATADINE
     Indication: Nasopharyngitis

REACTIONS (1)
  - Extra dose administered [None]

NARRATIVE: CASE EVENT DATE: 20230203
